FAERS Safety Report 6805286-1 (Version None)
Quarter: 2010Q2

REPORT INFORMATION
  Report Type: 
  Country: None (occurrence: None)
  Receive Date: 20100628
  Receipt Date: 20071015
  Transmission Date: 20101027
  Serious: No
  Sender: FDA-Public Use
  Company Number: US-PFIZER INC-2007087307

PATIENT
  Sex: Female
  Weight: 81.65 kg

DRUGS (1)
  1. GENOTROPIN [Suspect]
     Indication: HYPOPITUITARISM
     Dates: start: 20030101, end: 20030101

REACTIONS (3)
  - ABDOMINAL DISTENSION [None]
  - CYSTITIS [None]
  - MALAISE [None]
